FAERS Safety Report 10244330 (Version 1)
Quarter: 2014Q1

REPORT INFORMATION
  Report Type: Spontaneous
  Country: US (occurrence: None)
  Receive Date: 20140306
  Receipt Date: 20140306
  Transmission Date: 20141002
  Serious: Yes (Hospitalization, Other)
  Sender: FDA-Public Use
  Company Number: 163-21880-13101011

PATIENT
  Age: 59 Year
  Sex: Male
  Weight: 92.5 kg

DRUGS (11)
  1. REVLIMID (LENALIDOMIDE) (25 MILLIGRAM, CAPSULES) [Suspect]
     Indication: PLASMA CELL MYELOMA
     Route: 048
     Dates: start: 201005
  2. DEXAMETHASONE (UNKNOWN) [Suspect]
     Indication: PRODUCT USED FOR UNKNOWN INDICATION
     Dosage: UNKNOWN
  3. VELCADE (BORTEZOMIB) (UNKNOWN) [Concomitant]
  4. BENZONATATE (CAPSULES) [Concomitant]
  5. CALCIUM +D (OS-CAL) (TABLETS) [Concomitant]
  6. FLOVENT DISKUS (FLUTICASONE PROPIONATE) (AEROSOL FOR INHALATION) [Concomitant]
  7. LANTUS (INSULIN GLARGINE) (UNKNOWN) [Concomitant]
  8. PRILOSEC (OMEPRAZOLE) (CAPSULES) [Concomitant]
  9. PROAIR (FLUTICASONE PROPIONATE) (AEROSOL FOR INHALATION) [Concomitant]
  10. PROCHLORPERAZONE MALEATE (TABLETS) [Concomitant]
  11. ZOMETA (ZOLEDRONIC ACID) (UNKNOWN) [Concomitant]

REACTIONS (8)
  - Gastrointestinal haemorrhage [None]
  - Neuropathy peripheral [None]
  - Dizziness [None]
  - Deep vein thrombosis [None]
  - Pancytopenia [None]
  - Gastroenteritis [None]
  - Renal failure acute [None]
  - Liver function test abnormal [None]
